FAERS Safety Report 10031745 (Version 1)
Quarter: 2014Q1

REPORT INFORMATION
  Report Type: Spontaneous
  Country: US (occurrence: US)
  Receive Date: 20140324
  Receipt Date: 20140324
  Transmission Date: 20141002
  Serious: No
  Sender: FDA-Public Use
  Company Number: US-PFIZER INC-2014082534

PATIENT
  Age: 67 Year
  Sex: Female
  Weight: 90.7 kg

DRUGS (6)
  1. CELEBREX [Suspect]
     Indication: ARTHRITIS
     Dosage: 200 MG, 2X/DAY
  2. CELEBREX [Suspect]
     Dosage: 200 MG, DAILY
  3. CELEBREX [Suspect]
     Dosage: 200 MG, 2X/DAY
  4. METOPROLOL SUCCINATE [Concomitant]
     Indication: HYPERTENSION
     Dosage: 100 MG, DAILY
  5. ATORVASTATIN CALCIUM [Concomitant]
     Indication: BLOOD CHOLESTEROL INCREASED
     Dosage: 10 MG, DAILY
  6. NEXIUM [Concomitant]
     Indication: ABDOMINAL DISCOMFORT
     Dosage: 40 MG, DAILY

REACTIONS (6)
  - Musculoskeletal stiffness [Recovering/Resolving]
  - Activities of daily living impaired [Recovering/Resolving]
  - Joint stiffness [Recovering/Resolving]
  - Back pain [Unknown]
  - Drug dose omission [Unknown]
  - Discomfort [Unknown]
